FAERS Safety Report 14313337 (Version 1)
Quarter: 2017Q4

REPORT INFORMATION
  Report Type: Spontaneous
  Country: US (occurrence: US)
  Receive Date: 20171220
  Receipt Date: 20171220
  Transmission Date: 20180321
  Serious: Yes (Life-Threatening)
  Sender: FDA-Public Use
  Company Number: None

PATIENT
  Age: 63 Year
  Sex: Male
  Weight: 82.3 kg

DRUGS (1)
  1. HEPARIN [Suspect]
     Active Substance: HEPARIN SODIUM
     Indication: ANTICOAGULANT THERAPY
     Dosage: ?          OTHER FREQUENCY:ONCE;?
     Route: 042
     Dates: start: 20171215, end: 20171215

REACTIONS (5)
  - Hypotension [None]
  - Pulseless electrical activity [None]
  - Bradycardia [None]
  - Anaphylactic reaction [None]
  - Tachycardia [None]

NARRATIVE: CASE EVENT DATE: 20171215
